FAERS Safety Report 8123061-5 (Version None)
Quarter: 2012Q1

REPORT INFORMATION
  Report Type: 
  Country: None (occurrence: None)
  Receive Date: 20120208
  Receipt Date: 20120206
  Transmission Date: 20120608
  Serious: No
  Sender: FDA-Public Use
  Company Number: US-PFIZER INC-2011294886

PATIENT
  Sex: Male
  Weight: 130 kg

DRUGS (5)
  1. CHANTIX [Suspect]
     Indication: SMOKING CESSATION THERAPY
     Dosage: UNK
     Route: 048
     Dates: start: 20111101
  2. OMEPRAZOLE [Concomitant]
     Indication: DYSPEPSIA
     Dosage: 20 MG, DAILY
  3. PREVACID [Concomitant]
     Indication: DYSPEPSIA
     Dosage: 5 MG, UNK
  4. CHANTIX [Suspect]
     Dosage: 0.5 MG, 1X/DAY
     Route: 048
     Dates: start: 20111120
  5. OXYBUTYNIN CHLORIDE [Concomitant]
     Dosage: UNK

REACTIONS (6)
  - FEELING ABNORMAL [None]
  - NAUSEA [None]
  - MALAISE [None]
  - ANGER [None]
  - STRESS [None]
  - ABNORMAL DREAMS [None]
